FAERS Safety Report 4380395-8 (Version None)
Quarter: 2004Q2

REPORT INFORMATION
  Report Type: 
  Country: None (occurrence: None)
  Receive Date: 20040614
  Receipt Date: 20040604
  Transmission Date: 20050107
  Serious: Yes (Life-Threatening)
  Sender: FDA-Public Use
  Company Number: J081-002-001648

PATIENT
  Age: 80 Year
  Sex: Male

DRUGS (4)
  1. ARICEPT [Suspect]
     Dosage: 5 MG 1 IN 1 D ORAL
     Route: 048
     Dates: start: 20040401, end: 20040430
  2. LIPITOR [Concomitant]
  3. AMARYL [Concomitant]
  4. BUFFERIN [Concomitant]

REACTIONS (2)
  - ARRHYTHMIA [None]
  - MALAISE [None]
